FAERS Safety Report 25860713 (Version 1)
Quarter: 2025Q3

REPORT INFORMATION
  Report Type: Spontaneous
  Country: US (occurrence: None)
  Receive Date: 20250928
  Receipt Date: 20250928
  Transmission Date: 20251021
  Serious: Yes (Hospitalization)
  Sender: FDA-CTU
  Company Number: None

PATIENT
  Sex: Male
  Weight: 63 kg

DRUGS (4)
  1. TERIPARATIDE [Suspect]
     Active Substance: TERIPARATIDE
     Indication: Osteoporosis
     Dosage: 20 UG DAILY SUBCUTANEOUS ?
     Route: 058
     Dates: start: 20250523
  2. FABRAZYME [Suspect]
     Active Substance: AGALSIDASE BETA
  3. MYCOPHENOLIC ACID [Concomitant]
     Active Substance: MYCOPHENOLIC ACID
  4. FORTEO [Concomitant]
     Active Substance: TERIPARATIDE

REACTIONS (7)
  - Inappropriate schedule of product administration [None]
  - Pyrexia [None]
  - Chills [None]
  - Urinary tract infection [None]
  - Heart rate increased [None]
  - Hypotension [None]
  - Cardiac pacemaker insertion [None]
